FAERS Safety Report 14899763 (Version 1)
Quarter: 2018Q2

REPORT INFORMATION
  Report Type: Spontaneous
  Country: FR (occurrence: FR)
  Receive Date: 20180516
  Receipt Date: 20180516
  Transmission Date: 20180711
  Serious: Yes (Other)
  Sender: FDA-Public Use
  Company Number: FR-MERCK KGAA-2047859

PATIENT
  Age: 64 Year
  Sex: Female

DRUGS (1)
  1. NOVOTHYROX [Suspect]
     Active Substance: LEVOTHYROXINE SODIUM
     Indication: POST PROCEDURAL HYPOTHYROIDISM

REACTIONS (16)
  - Hyperthyroidism [Recovered/Resolved]
  - Social avoidant behaviour [Recovered/Resolved]
  - Loss of libido [Recovered/Resolved]
  - Bipolar I disorder [Recovered/Resolved]
  - Personal relationship issue [Recovered/Resolved]
  - Vision blurred [Recovered/Resolved]
  - Oral discomfort [Recovered/Resolved]
  - Impaired work ability [Recovered/Resolved]
  - Crying [Recovered/Resolved]
  - Loss of personal independence in daily activities [Recovered/Resolved]
  - Speech disorder [Recovered/Resolved]
  - Tinnitus [Recovered/Resolved]
  - Arrhythmia [Recovered/Resolved]
  - Deafness transitory [Recovered/Resolved]
  - Dizziness [Recovered/Resolved]
  - Skin atrophy [Recovered/Resolved]

NARRATIVE: CASE EVENT DATE: 20170724
